FAERS Safety Report 4905821-4 (Version None)
Quarter: 2006Q1

REPORT INFORMATION
  Report Type: 
  Country: None (occurrence: None)
  Receive Date: 20060203
  Receipt Date: 20060118
  Transmission Date: 20060701
  Serious: Yes (Disabling)
  Sender: FDA-Public Use
  Company Number: 2005BL006335

PATIENT
  Age: 61 Year
  Sex: Female

DRUGS (2)
  1. NEOMYCIN AND POLYMXIN B SULFATES AND HYDROCORTISONE [Suspect]
     Indication: EAR INFECTION
     Dosage: 4 DROP, 4 TIMES A DAY; TOPICAL
     Route: 061
     Dates: start: 20051014, end: 20051021
  2. AMOXICILLIN [Concomitant]

REACTIONS (5)
  - AURICULAR SWELLING [None]
  - BALANCE DISORDER [None]
  - EAR DISCOMFORT [None]
  - EAR PAIN [None]
  - FACIAL PAIN [None]
